FAERS Safety Report 5644799-5 (Version None)
Quarter: 2008Q1

REPORT INFORMATION
  Report Type: 
  Country: None (occurrence: None)
  Receive Date: 20080229
  Receipt Date: 20070810
  Transmission Date: 20080703
  Serious: No
  Sender: FDA-Public Use
  Company Number: A0669482A

PATIENT
  Age: 56 Year
  Sex: Female

DRUGS (4)
  1. VALTREX [Suspect]
     Dosage: 1G PER DAY
     Route: 048
     Dates: start: 20070401
  2. SYNTHROID [Concomitant]
     Dosage: .125MG PER DAY
  3. ATENOLOL [Concomitant]
     Dosage: 50MG PER DAY
  4. MIRAPEX [Concomitant]
     Dosage: .25MG TWICE PER DAY

REACTIONS (1)
  - ALOPECIA [None]
